FAERS Safety Report 23478686 (Version 1)
Quarter: 2024Q1

REPORT INFORMATION
  Report Type: Spontaneous
  Country: US (occurrence: US)
  Receive Date: 20240205
  Receipt Date: 20240205
  Transmission Date: 20240409
  Serious: Yes (Hospitalization, Other)
  Sender: FDA-Public Use
  Company Number: US-BRISTOL-MYERS SQUIBB COMPANY-2024-016413

PATIENT
  Age: 46 Year
  Sex: Male

DRUGS (1)
  1. VIDAZA [Suspect]
     Active Substance: AZACITIDINE
     Indication: Acute myeloid leukaemia
     Dosage: DOSE : 75 MG/M2;     FREQ : DAILY X 7 DAYS, EVERY 4-5 WEEKS
     Route: 042
     Dates: start: 20231117

REACTIONS (4)
  - Gastrointestinal haemorrhage [Unknown]
  - Fistula [Unknown]
  - Off label use [Unknown]
  - Physical deconditioning [Unknown]
